FAERS Safety Report 7722955-X (Version None)
Quarter: 2011Q3

REPORT INFORMATION
  Report Type: 
  Country: None (occurrence: None)
  Receive Date: 20110825
  Receipt Date: 20110818
  Transmission Date: 20111222
  Serious: Yes (Hospitalization)
  Sender: FDA-Public Use
  Company Number: 15860851

PATIENT
  Age: 77 Year
  Sex: Female

DRUGS (15)
  1. ESCITALOPRAM OXALATE [Concomitant]
  2. DICLOFENAC SODIUM [Concomitant]
  3. PRETERAX (PERINDOPRIL ERBUMINE + INDAPAMIDE) [Concomitant]
  4. PHLOROGLUCINOL (PHLOROGLUCINOL) [Concomitant]
  5. NAFTAZONE (NAFTAZONE) [Concomitant]
  6. BISACODYL (BISACODYL) [Concomitant]
  7. PLACEBO [Suspect]
     Indication: EMBOLISM
     Route: 048
     Dates: start: 20110610
  8. BROMAZEPAM (BROMAZEPAM) [Concomitant]
  9. APIXABAN [Suspect]
     Indication: EMBOLISM
     Dosage: 20 MILLIGRAM 1 DAY
     Route: 048
     Dates: start: 20110610
  10. WARFARIN SODIUM [Suspect]
     Indication: EMBOLISM
     Dosage: 5 MILLIGRAM 1 DAY
     Route: 048
     Dates: start: 20110610
  11. ACETAMINOPHEN [Concomitant]
  12. TRIMEBUTINE (TRIMEBUTINE MALEATE) [Concomitant]
  13. STRONTIUM RANELATE (STRONTIUM RANELATE0 [Concomitant]
  14. ENOXAPARIN SODIUM [Suspect]
     Indication: EMBOLISM
  15. IXPRIM (TRAMADOL HCL + ACETAMINOPHEN) [Concomitant]

REACTIONS (2)
  - DIVERTICULUM INTESTINAL [None]
  - PANIC ATTACK [None]
